FAERS Safety Report 5789073-1 (Version None)
Quarter: 2008Q2

REPORT INFORMATION
  Report Type: 
  Country: None (occurrence: None)
  Receive Date: 20080626
  Receipt Date: 20080418
  Transmission Date: 20081010
  Serious: No
  Sender: FDA-Public Use
  Company Number: US-ASTRAZENECA-2007UW26807

PATIENT
  Age: 97 Year
  Sex: Male
  Weight: 78.5 kg

DRUGS (1)
  1. PULMICORT FLEXHALER [Suspect]
     Indication: EMPHYSEMA
     Dosage: 2 INHALATIONS TWICE A DAY
     Route: 055

REACTIONS (1)
  - RESPIRATORY DISORDER [None]
